FAERS Safety Report 7953167-2 (Version None)
Quarter: 2011Q4

REPORT INFORMATION
  Report Type: 
  Country: None (occurrence: None)
  Receive Date: 20111201
  Receipt Date: 20111129
  Transmission Date: 20120403
  Serious: Yes (Other)
  Sender: FDA-Public Use
  Company Number: US-ROCHE-788973

PATIENT
  Sex: Female
  Weight: 61.29 kg

DRUGS (2)
  1. ORTHO TRI-CYCLEN [Concomitant]
  2. ACCUTANE [Suspect]
     Indication: ACNE
     Route: 048
     Dates: start: 19981201, end: 19990401

REACTIONS (8)
  - INFLAMMATORY BOWEL DISEASE [None]
  - COLITIS ULCERATIVE [None]
  - LIP DRY [None]
  - ANXIETY [None]
  - MENTAL DISORDER [None]
  - EMOTIONAL DISTRESS [None]
  - DEPRESSION [None]
  - DRY SKIN [None]
